FAERS Safety Report 5026947-3 (Version None)
Quarter: 2006Q2

REPORT INFORMATION
  Report Type: 
  Country: None (occurrence: None)
  Receive Date: 20060609
  Receipt Date: 20060529
  Transmission Date: 20061013
  Serious: Yes (Hospitalization)
  Sender: FDA-Public Use
  Company Number: 2006VX000559

PATIENT
  Age: 72 Year
  Sex: Male

DRUGS (6)
  1. MESTINON [Suspect]
     Indication: MYASTHENIC SYNDROME
     Dosage: 240 MG; QD; PO
     Route: 048
     Dates: start: 19960101
  2. CORTAN [Suspect]
     Dosage: 10 MG; QD; PO
     Route: 048
  3. DOMPERIDONE (DOMPERIDONE) [Suspect]
     Dosage: 3 DF; QD; PO
     Route: 048
  4. OMEPRAZOLE [Suspect]
     Dosage: 3 DF; QD; PO
     Route: 048
  5. CELLCEPT [Suspect]
     Dosage: 4 DF; QD; PO
     Route: 048
  6. TRAMADOL HCL [Suspect]
     Dosage: 2 DF; QD; PO
     Route: 048

REACTIONS (3)
  - FLANK PAIN [None]
  - PERINEPHRIC EFFUSION [None]
  - RETROPERITONEAL FIBROSIS [None]
